FAERS Safety Report 13254758 (Version 1)
Quarter: 2017Q1

REPORT INFORMATION
  Report Type: Spontaneous
  Country: DE (occurrence: DE)
  Receive Date: 20170221
  Receipt Date: 20170221
  Transmission Date: 20170428
  Serious: Yes (Other)
  Sender: FDA-Public Use
  Company Number: DE-AMGEN-DEUSP2017011927

PATIENT
  Age: 78 Year
  Sex: Female
  Weight: 51 kg

DRUGS (4)
  1. PROLIA [Suspect]
     Active Substance: DENOSUMAB
     Indication: GASTROOESOPHAGEAL REFLUX DISEASE
  2. PROLIA [Suspect]
     Active Substance: DENOSUMAB
     Indication: OSTEOPOROSIS
     Dosage: 60 MG, UNK
     Route: 058
     Dates: start: 20140916, end: 20160829
  3. CELEBREX [Concomitant]
     Active Substance: CELECOXIB
     Dosage: UNK, AS NECESSARY
  4. IDEOS [Concomitant]
     Active Substance: CALCIUM CARBONATE\CHOLECALCIFEROL
     Indication: OSTEOPOROSIS
     Dosage: UNK, BID

REACTIONS (7)
  - Inappropriate schedule of drug administration [Unknown]
  - Arthralgia [Unknown]
  - Pain in extremity [Unknown]
  - Dermatitis allergic [Unknown]
  - Musculoskeletal pain [Unknown]
  - Adjustment disorder with depressed mood [Unknown]
  - Alopecia [Not Recovered/Not Resolved]

NARRATIVE: CASE EVENT DATE: 201501
